FAERS Safety Report 5141736-7 (Version None)
Quarter: 2006Q4

REPORT INFORMATION
  Report Type: 
  Country: None (occurrence: None)
  Receive Date: 20061027
  Receipt Date: 20061011
  Transmission Date: 20070319
  Serious: Yes (Other)
  Sender: FDA-Public Use
  Company Number: CA200605002594

PATIENT
  Age: 69 Year
  Sex: Male
  Weight: 65.8 kg

DRUGS (16)
  1. FORTEO [Suspect]
     Indication: OSTEOPOROSIS
     Dosage: 20 UG, DAILY (1/D)
     Dates: start: 20060308, end: 20060601
  2. FORTEO [Suspect]
     Indication: OSTEOPOROSIS
     Dosage: 20 UG, DAILY (1/D)
     Dates: start: 20060621
  3. HUMALOG [Concomitant]
  4. HUMULIN R [Concomitant]
  5. ATACAND [Concomitant]
  6. ALTACE [Concomitant]
  7. METFORMIN HCL [Concomitant]
  8. ASPIRIN [Concomitant]
  9. CRESTOR [Concomitant]
  10. FOLIC ACID [Concomitant]
  11. OMEGA 3 (FISH OIL) [Concomitant]
  12. CALCIUM CARBONATE (CALCIUM CARBONATE) [Concomitant]
  13. VITAMIN D [Concomitant]
  14. GLUCOSAMINE (GLUCOSAMINE) [Concomitant]
  15. FORTEO [Concomitant]
  16. HYDROCHLOROTHIAZIDE [Concomitant]

REACTIONS (10)
  - BLOOD CALCIUM INCREASED [None]
  - BRADYCARDIA [None]
  - CARDIAC MURMUR [None]
  - COLLAGEN ANTIGEN TYPE 1 [None]
  - ELECTROCARDIOGRAM AMBULATORY ABNORMAL [None]
  - GLOBULINS INCREASED [None]
  - LABORATORY TEST ABNORMAL [None]
  - OSTEOCALCIN DECREASED [None]
  - SUPRAVENTRICULAR EXTRASYSTOLES [None]
  - VENTRICULAR EXTRASYSTOLES [None]
